FAERS Safety Report 19267037 (Version 3)
Quarter: 2021Q3

REPORT INFORMATION
  Report Type: Report from Study
  Country: JP (occurrence: JP)
  Receive Date: 20210518
  Receipt Date: 20210714
  Transmission Date: 20211014
  Serious: Yes (Death, Hospitalization, Other)
  Sender: FDA-Public Use
  Company Number: JP-TAKEDA-2017TUS024380

PATIENT
  Age: 48 Year
  Sex: Female
  Weight: 53 kg

DRUGS (10)
  1. DAUNOMYCIN [DAUNORUBICIN HYDROCHLORIDE] [Suspect]
     Active Substance: DAUNORUBICIN HYDROCHLORIDE
     Indication: CHRONIC MYELOID LEUKAEMIA
     Dosage: UNK
     Route: 065
     Dates: start: 20170810, end: 20170816
  2. PONATINIB [Suspect]
     Active Substance: PONATINIB
     Dosage: 45 MILLIGRAM, QD
     Route: 048
     Dates: start: 20170615, end: 20170621
  3. CYLOCIDE [Suspect]
     Active Substance: CYTARABINE
     Indication: CHRONIC MYELOID LEUKAEMIA
     Dosage: UNK
     Route: 065
     Dates: start: 20170810, end: 20170816
  4. PONATINIB [Suspect]
     Active Substance: PONATINIB
     Indication: CHRONIC MYELOID LEUKAEMIA TRANSFORMATION
     Dosage: UNK
     Route: 048
  5. PONATINIB [Suspect]
     Active Substance: PONATINIB
     Dosage: 15 MILLIGRAM, QD
     Route: 048
     Dates: start: 20170718, end: 20170806
  6. PONATINIB [Suspect]
     Active Substance: PONATINIB
     Dosage: 30 MILLIGRAM, QD
     Route: 048
     Dates: start: 20170628, end: 20170714
  7. PONATINIB [Suspect]
     Active Substance: PONATINIB
     Dosage: 30 MILLIGRAM, QD
     Route: 048
     Dates: start: 20170807, end: 20170906
  8. IMATINIB MESILATE [Concomitant]
     Active Substance: IMATINIB MESYLATE
     Indication: CHRONIC MYELOID LEUKAEMIA TRANSFORMATION
     Dosage: 400 MILLIGRAM, QD
     Route: 065
  9. DASATINIB MONOHYDRATE [Concomitant]
     Active Substance: DASATINIB
     Indication: CHRONIC MYELOID LEUKAEMIA TRANSFORMATION
     Dosage: 140 MILLIGRAM, QD
     Route: 065
     Dates: start: 20170419, end: 20170614
  10. PONATINIB [Suspect]
     Active Substance: PONATINIB
     Dosage: 15 MILLIGRAM, QD
     Route: 048
     Dates: start: 20170907, end: 20170909

REACTIONS (4)
  - Pneumonia [Fatal]
  - Chronic myeloid leukaemia transformation [Fatal]
  - Myelosuppression [Unknown]
  - Pulmonary alveolar haemorrhage [Fatal]

NARRATIVE: CASE EVENT DATE: 20170909
